FAERS Safety Report 18948179 (Version 2)
Quarter: 2021Q1

REPORT INFORMATION
  Report Type: Spontaneous
  Country: US (occurrence: US)
  Receive Date: 20210226
  Receipt Date: 20210303
  Transmission Date: 20210420
  Serious: No
  Sender: FDA-Public Use
  Company Number: US-PFIZER INC-2021192334

PATIENT
  Age: 59 Year
  Sex: Female

DRUGS (1)
  1. IBRANCE [Suspect]
     Active Substance: PALBOCICLIB
     Indication: LUNG NEOPLASM MALIGNANT
     Dosage: 100 MG

REACTIONS (6)
  - Off label use [Unknown]
  - Tumour marker increased [Unknown]
  - Product dose omission issue [Unknown]
  - Illness [Unknown]
  - Fibromyalgia [Unknown]
  - Pain [Unknown]
